FAERS Safety Report 4947919-0 (Version None)
Quarter: 2006Q1

REPORT INFORMATION
  Report Type: 
  Country: None (occurrence: None)
  Receive Date: 20060314
  Receipt Date: 20060301
  Transmission Date: 20060701
  Serious: Yes (Other)
  Sender: FDA-Public Use
  Company Number: 2006033122

PATIENT
  Sex: 0

DRUGS (1)
  1. REVATIO [Suspect]
     Indication: ILL-DEFINED DISORDER
     Dosage: 120 MG (40 MG, 3 IN 1 D), UNKNOWN
     Route: 065

REACTIONS (2)
  - PANCREATITIS [None]
  - RENAL FAILURE [None]
